FAERS Safety Report 5324530-3 (Version None)
Quarter: 2007Q2

REPORT INFORMATION
  Report Type: 
  Country: None (occurrence: None)
  Receive Date: 20070508
  Receipt Date: 20070426
  Transmission Date: 20071010
  Serious: Yes (Other)
  Sender: FDA-Public Use
  Company Number: L07-GER-01587-01

PATIENT
  Age: 61 Year
  Sex: Male

DRUGS (7)
  1. DILTIAZEM [Suspect]
  2. FUROSMEIDE [Concomitant]
  3. AMPHOTERICIN B [Concomitant]
  4. FENTANYL [Concomitant]
  5. CALCIUM CARBONATE [Concomitant]
  6. THEOPHYLLINE [Concomitant]
  7. TIOTROPIUM BROMIDE [Concomitant]

REACTIONS (2)
  - ACUTE GENERALISED EXANTHEMATOUS PUSTULOSIS [None]
  - SKIN TEST POSITIVE [None]
